FAERS Safety Report 15064872 (Version 2)
Quarter: 2018Q3

REPORT INFORMATION
  Report Type: Spontaneous
  Country: US (occurrence: US)
  Receive Date: 20180626
  Receipt Date: 20180712
  Transmission Date: 20181010
  Serious: Yes (Hospitalization)
  Sender: FDA-Public Use
  Company Number: US-BEH-2018091970

PATIENT
  Age: 62 Year
  Sex: Female
  Weight: 126.98 kg

DRUGS (7)
  1. ACETAMINOPHEN. [Concomitant]
     Active Substance: ACETAMINOPHEN
  2. HIZENTRA [Suspect]
     Active Substance: HUMAN IMMUNOGLOBULIN G
     Indication: IMMUNODEFICIENCY COMMON VARIABLE
     Dosage: UNK
     Route: 058
  3. EPINEPHRINE. [Concomitant]
     Active Substance: EPINEPHRINE
  4. HIZENTRA [Suspect]
     Active Substance: HUMAN IMMUNOGLOBULIN G
     Dosage: UNK
     Route: 058
  5. HIZENTRA [Suspect]
     Active Substance: HUMAN IMMUNOGLOBULIN G
     Dosage: 8 G, QW
     Route: 058
     Dates: start: 20180504
  6. DIPHENHYDRAMINE. [Concomitant]
     Active Substance: DIPHENHYDRAMINE
  7. GAMMAGARD [Concomitant]
     Active Substance: HUMAN IMMUNOGLOBULIN G

REACTIONS (5)
  - Cystitis [Unknown]
  - Cardiomegaly [Unknown]
  - Sepsis [Unknown]
  - Pulmonary thrombosis [Unknown]
  - Ill-defined disorder [Unknown]

NARRATIVE: CASE EVENT DATE: 201806
